FAERS Safety Report 6737526-1 (Version None)
Quarter: 2010Q2

REPORT INFORMATION
  Report Type: 
  Country: None (occurrence: None)
  Receive Date: 20100524
  Receipt Date: 20100512
  Transmission Date: 20101027
  Serious: Yes (Hospitalization)
  Sender: FDA-Public Use
  Company Number: CA-JNJFOC-20100505836

PATIENT
  Sex: Male
  Weight: 120 kg

DRUGS (5)
  1. REMICADE [Suspect]
     Indication: CROHN'S DISEASE
     Route: 042
  2. CORTISONE [Concomitant]
  3. BENADRYL [Concomitant]
     Indication: PREMEDICATION
     Route: 048
  4. ACETAMINOPHEN [Concomitant]
     Indication: PREMEDICATION
     Route: 048
  5. SOLU-CORTEF [Concomitant]
     Indication: PREMEDICATION
     Route: 048

REACTIONS (3)
  - ABDOMINAL WALL ABSCESS [None]
  - INTESTINAL FISTULA [None]
  - INTESTINAL STENOSIS [None]
